FAERS Safety Report 8897697 (Version 1)
Quarter: 2012Q4

REPORT INFORMATION
  Report Type: 
  Country: US (occurrence: US)
  Receive Date: 20121108
  Receipt Date: 20121108
  Transmission Date: 20130627
  Serious: No
  Sender: FDA-Public Use
  Company Number: US-AMGEN-USASP2012025148

PATIENT
  Age: 56 Year
  Sex: Female

DRUGS (7)
  1. ENBREL [Suspect]
     Indication: PRODUCT USED FOR UNKNOWN INDICATION
     Dosage: 50 mg, qwk
     Route: 058
  2. PERCOCET                           /00446701/ [Concomitant]
  3. SYNTHROID [Concomitant]
     Dosage: 125 mug, UNK
  4. HYDROCHLOROTH [Concomitant]
     Dosage: 12.5 mg, UNK
  5. OMEGA 3                            /01334101/ [Concomitant]
     Dosage: 1000 mg, UNK
  6. VITAMIN A /00056001/ [Concomitant]
  7. VITAMIN D /00107901/ [Concomitant]

REACTIONS (4)
  - Acne [Unknown]
  - Injection site reaction [Unknown]
  - Injection site inflammation [Unknown]
  - Injection site erythema [Unknown]
